FAERS Safety Report 12690531 (Version 1)
Quarter: 2016Q3

REPORT INFORMATION
  Report Type: Spontaneous
  Country: FR (occurrence: FR)
  Receive Date: 20160826
  Receipt Date: 20160826
  Transmission Date: 20161109
  Serious: Yes (Hospitalization)
  Sender: FDA-Public Use
  Company Number: FR-ELI_LILLY_AND_COMPANY-FR201608009223

PATIENT
  Age: 11 Year
  Sex: Male
  Weight: 36 kg

DRUGS (3)
  1. ORAP [Concomitant]
     Active Substance: PIMOZIDE
     Indication: TOURETTE^S DISORDER
     Dosage: 4 MG, UNKNOWN
     Route: 065
  2. STRATTERA [Suspect]
     Active Substance: ATOMOXETINE HYDROCHLORIDE
     Indication: TOURETTE^S DISORDER
     Dosage: 18 MG, QD
     Route: 048
     Dates: start: 201604
  3. STRATTERA [Suspect]
     Active Substance: ATOMOXETINE HYDROCHLORIDE
     Dosage: 18 MG, BID
     Route: 048

REACTIONS (5)
  - Agitation [Recovered/Resolved]
  - Off label use [Unknown]
  - Anger [Recovered/Resolved]
  - Aggression [Recovered/Resolved]
  - Insomnia [Recovered/Resolved]

NARRATIVE: CASE EVENT DATE: 201304
